FAERS Safety Report 5892623-8 (Version None)
Quarter: 2008Q3

REPORT INFORMATION
  Report Type: 
  Country: None (occurrence: None)
  Receive Date: 20080919
  Receipt Date: 20080919
  Transmission Date: 20090109
  Serious: Yes (Life-Threatening, Hospitalization, Disabling, Other)
  Sender: FDA-Public Use
  Company Number: None

PATIENT
  Age: 73 Year
  Sex: Female
  Weight: 77.1115 kg

DRUGS (3)
  1. REGLAN [Suspect]
     Indication: ABDOMINAL PAIN UPPER
     Dosage: WITH MEALS ?  PO
     Route: 048
     Dates: start: 20030301, end: 20080919
  2. REGLAN [Suspect]
     Indication: VOMITING
     Dosage: WITH MEALS ?  PO
     Route: 048
     Dates: start: 20030301, end: 20080919
  3. REGLAN [Suspect]
     Dosage: INSULIN INJECTED 1X DAILY OTHER
     Route: 050

REACTIONS (31)
  - ACTIVITIES OF DAILY LIVING IMPAIRED [None]
  - ASTHENIA [None]
  - BACK PAIN [None]
  - BALANCE DISORDER [None]
  - CONFUSIONAL STATE [None]
  - DISORIENTATION [None]
  - DROOLING [None]
  - EXERCISE LACK OF [None]
  - FALL [None]
  - FATIGUE [None]
  - GENERAL PHYSICAL HEALTH DETERIORATION [None]
  - HEAD INJURY [None]
  - IMPAIRED DRIVING ABILITY [None]
  - INSOMNIA [None]
  - IRRITABILITY [None]
  - MASKED FACIES [None]
  - MEMORY IMPAIRMENT [None]
  - MOVEMENT DISORDER [None]
  - MUSCLE SPASMS [None]
  - MUSCLE TWITCHING [None]
  - NECK PAIN [None]
  - PALLOR [None]
  - PARKINSON'S DISEASE [None]
  - ROAD TRAFFIC ACCIDENT [None]
  - SOMNOLENCE [None]
  - THROMBOSIS [None]
  - TIC [None]
  - TREMOR [None]
  - UNEVALUABLE EVENT [None]
  - URINARY INCONTINENCE [None]
  - WALKING AID USER [None]
